FAERS Safety Report 16304349 (Version 1)
Quarter: 2019Q2

REPORT INFORMATION
  Report Type: Spontaneous
  Country: US (occurrence: US)
  Receive Date: 20190513
  Receipt Date: 20190513
  Transmission Date: 20190711
  Serious: No
  Sender: FDA-Public Use
  Company Number: US-PFIZER INC-2019198858

PATIENT
  Age: 85 Year
  Sex: Female

DRUGS (1)
  1. NEURONTIN [Suspect]
     Active Substance: GABAPENTIN
     Indication: SCOLIOSIS
     Dosage: UNK

REACTIONS (8)
  - Off label use [Unknown]
  - Pain in extremity [Unknown]
  - Insomnia [Unknown]
  - Incontinence [Unknown]
  - Burning sensation [Unknown]
  - Nausea [Unknown]
  - Vomiting [Unknown]
  - Product use in unapproved indication [Unknown]
